FAERS Safety Report 23750265 (Version 1)
Quarter: 2024Q2

REPORT INFORMATION
  Report Type: Spontaneous
  Country: US (occurrence: US)
  Receive Date: 20240417
  Receipt Date: 20240417
  Transmission Date: 20240716
  Serious: No
  Sender: FDA-Public Use
  Company Number: US-TRIS PHARMA, INC.-24US011461

PATIENT

DRUGS (2)
  1. ACETAMINOPHEN\HYDROCODONE BITARTRATE [Suspect]
     Active Substance: ACETAMINOPHEN\HYDROCODONE BITARTRATE
     Indication: Pain
     Dosage: 1 DOSAGE FORM, TID
     Route: 048
     Dates: start: 2019
  2. ACETAMINOPHEN\HYDROCODONE BITARTRATE [Suspect]
     Active Substance: ACETAMINOPHEN\HYDROCODONE BITARTRATE
     Dosage: 1 DOSAGE FORM, QID
     Route: 048

REACTIONS (9)
  - Dry mouth [Unknown]
  - Eczema [Unknown]
  - Dry throat [Unknown]
  - Dry skin [Unknown]
  - Tooth disorder [Unknown]
  - Product dose omission issue [Unknown]
  - Intentional product use issue [Unknown]
  - Rash [Unknown]
  - Drug ineffective [Unknown]
